FAERS Safety Report 16657667 (Version 3)
Quarter: 2024Q3

REPORT INFORMATION
  Report Type: Spontaneous
  Country: US (occurrence: US)
  Receive Date: 20190801
  Receipt Date: 20240801
  Transmission Date: 20241017
  Serious: No
  Sender: SEBELA
  Company Number: US-SEBELA IRELAND LIMITED-2019SEB00011

PATIENT
  Sex: Male

DRUGS (2)
  1. PAROXETINE [Suspect]
     Active Substance: PAROXETINE
     Indication: Obsessive-compulsive disorder
     Dosage: UNK
  2. PAROXETINE [Suspect]
     Active Substance: PAROXETINE
     Indication: Anxiety

REACTIONS (3)
  - Drug ineffective [Unknown]
  - Obsessive-compulsive disorder [Recovered/Resolved]
  - Product substitution issue [Unknown]
